FAERS Safety Report 8935374 (Version 1)
Quarter: 2012Q4

REPORT INFORMATION
  Report Type: Spontaneous
  Country: US (occurrence: None)
  Receive Date: 20121127
  Receipt Date: 20121127
  Transmission Date: 20130627
  Serious: No
  Sender: FDA-Public Use
  Company Number: None

PATIENT
  Age: 65 Year
  Sex: Female

DRUGS (2)
  1. NITRO-DUR [Suspect]
     Indication: ANGINA PECTORIS
     Dosage: apply 1 patch daily
     Route: 061
     Dates: start: 2010
  2. NITRO-DUR [Suspect]
     Indication: ENHANCED EXTERNAL COUNTERPULSATION
     Dosage: apply 1 patch daily
     Route: 061
     Dates: start: 2010

REACTIONS (2)
  - Product adhesion issue [None]
  - Incorrect dose administered [None]
